FAERS Safety Report 6644064-3 (Version None)
Quarter: 2010Q1

REPORT INFORMATION
  Report Type: 
  Country: None (occurrence: None)
  Receive Date: 20100322
  Receipt Date: 20100308
  Transmission Date: 20100710
  Serious: Yes (Other)
  Sender: FDA-Public Use
  Company Number: PHEH2010US03084

PATIENT
  Sex: Female

DRUGS (2)
  1. RECLAST [Suspect]
     Dosage: UNK
     Dates: start: 20080515
  2. CALCIUM [Suspect]
     Dosage: 17 MG, UNK

REACTIONS (2)
  - HEAD AND NECK CANCER [None]
  - LIP AND/OR ORAL CAVITY CANCER [None]
